FAERS Safety Report 14269384 (Version 1)
Quarter: 2017Q4

REPORT INFORMATION
  Report Type: Spontaneous
  Country: GR (occurrence: GR)
  Receive Date: 20171211
  Receipt Date: 20171211
  Transmission Date: 20180321
  Serious: Yes (Other)
  Sender: FDA-Public Use
  Company Number: GR-PFIZER INC-2017524243

PATIENT
  Age: 82 Year
  Sex: Male
  Weight: 72 kg

DRUGS (5)
  1. BRETARIS GENUAIR [Concomitant]
     Active Substance: ACLIDINIUM BROMIDE
     Indication: CHRONIC OBSTRUCTIVE PULMONARY DISEASE
     Dosage: UNK
  2. ZURCAZOL [Suspect]
     Active Substance: PANTOPRAZOLE SODIUM
     Indication: PROPHYLAXIS
     Dosage: 40 MG, QD (IN THE MORNING, FOODLESS)
     Route: 048
     Dates: start: 20171128
  3. DIOVAN [Concomitant]
     Active Substance: VALSARTAN
     Indication: ADJUVANT THERAPY
     Dosage: UNK
     Dates: start: 201709
  4. TILDIEM [Concomitant]
     Active Substance: DILTIAZEM HYDROCHLORIDE
     Indication: ADJUVANT THERAPY
     Dosage: UNK
     Dates: start: 201709
  5. PLAVIX [Concomitant]
     Active Substance: CLOPIDOGREL BISULFATE
     Indication: ADJUVANT THERAPY
     Dosage: UNK
     Dates: start: 201709

REACTIONS (2)
  - Haematuria [Unknown]
  - Haematochezia [Unknown]

NARRATIVE: CASE EVENT DATE: 20171129
